FAERS Safety Report 12159126 (Version 1)
Quarter: 2016Q1

REPORT INFORMATION
  Report Type: Spontaneous
  Country: US (occurrence: None)
  Receive Date: 20160307
  Receipt Date: 20160307
  Transmission Date: 20160526
  Serious: Yes (Hospitalization)
  Sender: FDA-Public Use
  Company Number: None

PATIENT
  Age: 4 Year
  Sex: Female
  Weight: 22.2 kg

DRUGS (6)
  1. CYTARABINE. [Suspect]
     Active Substance: CYTARABINE
     Dates: end: 20160214
  2. METHOTREXATE [Suspect]
     Active Substance: METHOTREXATE
     Dates: end: 20160222
  3. VINCRISTINE SULFATE. [Suspect]
     Active Substance: VINCRISTINE SULFATE
     Dates: end: 20160229
  4. DEXAMETHASONE. [Suspect]
     Active Substance: DEXAMETHASONE
     Dates: end: 20160302
  5. ONCASPAR [Suspect]
     Active Substance: PEGASPARGASE
     Dates: end: 20160218
  6. DECADRON [Concomitant]
     Active Substance: DEXAMETHASONE

REACTIONS (8)
  - Pyrexia [None]
  - Duodenal perforation [None]
  - Diarrhoea [None]
  - Haematemesis [None]
  - Constipation [None]
  - Dizziness [None]
  - Leukaemia [None]
  - Lethargy [None]

NARRATIVE: CASE EVENT DATE: 20160303
